FAERS Safety Report 17210397 (Version 2)
Quarter: 2020Q1

REPORT INFORMATION
  Report Type: Spontaneous
  Country: GB (occurrence: GB)
  Receive Date: 20191227
  Receipt Date: 20200110
  Transmission Date: 20200409
  Serious: Yes (Hospitalization)
  Sender: FDA-Public Use
  Company Number: GB-MYLANLABS-2019M1129602

PATIENT
  Age: 32 Year
  Sex: Male
  Weight: 88.5 kg

DRUGS (2)
  1. CLOZARIL [Suspect]
     Active Substance: CLOZAPINE
     Dosage: 100 MILLIGRAM, PM (150 MGS)
     Route: 048
     Dates: start: 20091120
  2. CLOZARIL [Suspect]
     Active Substance: CLOZAPINE
     Indication: SCHIZOPHRENIA
     Dosage: 50 MILLIGRAM, AM (150 MGS)
     Route: 048
     Dates: start: 20091120

REACTIONS (1)
  - Pancreatitis acute [Unknown]
